FAERS Safety Report 14432722 (Version 2)
Quarter: 2018Q1

REPORT INFORMATION
  Report Type: Spontaneous
  Country: US (occurrence: US)
  Receive Date: 20180124
  Receipt Date: 20180301
  Transmission Date: 20180509
  Serious: Yes (Other)
  Sender: FDA-Public Use
  Company Number: US-ENDO PHARMACEUTICALS INC-2018-014383

PATIENT
  Age: 61 Year
  Sex: Male
  Weight: 92.52 kg

DRUGS (2)
  1. XIAFLEX [Suspect]
     Active Substance: COLLAGENASE CLOSTRIDIUM HISTOLYTICUM
     Indication: PEYRONIE^S DISEASE
     Dosage: 0.58 MG, SECOND INJECTION OF CYCLE 1, UNKNOWN
     Route: 026
     Dates: start: 20180102, end: 20180102
  2. XIAFLEX [Suspect]
     Active Substance: COLLAGENASE CLOSTRIDIUM HISTOLYTICUM
     Dosage: 0.58 MG, FIRST INJECTION OF CYCLE 1, UNKNOWN
     Route: 026
     Dates: start: 20171212

REACTIONS (8)
  - Penile pain [Not Recovered/Not Resolved]
  - Penile swelling [Unknown]
  - Rash pruritic [Recovered/Resolved]
  - Penile burning sensation [Not Recovered/Not Resolved]
  - Penile haemorrhage [Recovered/Resolved]
  - Penile contusion [Recovered/Resolved]
  - Penile blister [Recovered/Resolved]
  - Inappropriate schedule of drug administration [Recovered/Resolved]

NARRATIVE: CASE EVENT DATE: 201712
